FAERS Safety Report 5893370-9 (Version None)
Quarter: 2008Q3

REPORT INFORMATION
  Report Type: 
  Country: None (occurrence: None)
  Receive Date: 20080922
  Receipt Date: 20080922
  Transmission Date: 20090109
  Serious: Yes (Hospitalization, Other)
  Sender: FDA-Public Use
  Company Number: None

PATIENT
  Age: 19 Year
  Sex: Male
  Weight: 63.5036 kg

DRUGS (1)
  1. PROAIR HFA [Suspect]
     Indication: ASTHMA
     Dosage: 200 METERED DOSE WHEN NEEDED INHAL
     Route: 055
     Dates: start: 20071206, end: 20080920

REACTIONS (2)
  - COUGH [None]
  - DYSPNOEA [None]
